FAERS Safety Report 14516887 (Version 1)
Quarter: 2018Q1

REPORT INFORMATION
  Report Type: Report from Study
  Country: US (occurrence: US)
  Receive Date: 20180212
  Receipt Date: 20180212
  Transmission Date: 20180509
  Serious: No
  Sender: FDA-Public Use
  Company Number: US-PUMA BIOTECHNOLOGY, LTD.-2017US017541

PATIENT

DRUGS (2)
  1. NERLYNX [Suspect]
     Active Substance: NERATINIB
     Indication: BREAST CANCER FEMALE
     Dosage: 240 MG, DAILY
     Route: 048
     Dates: start: 20171209, end: 20171213
  2. NERLYNX [Suspect]
     Active Substance: NERATINIB
     Dosage: 80 MG (2 TABLETS), DAILY
     Route: 048
     Dates: start: 20171217

REACTIONS (1)
  - Fatigue [Recovering/Resolving]
